FAERS Safety Report 12413668 (Version 1)
Quarter: 2016Q2

REPORT INFORMATION
  Report Type: Report from Study
  Country: RO (occurrence: RO)
  Receive Date: 20160527
  Receipt Date: 20160527
  Transmission Date: 20160815
  Serious: Yes (Hospitalization)
  Sender: FDA-Public Use
  Company Number: RO-ABBVIE-16P-135-1638914-00

PATIENT
  Sex: Male

DRUGS (6)
  1. VIEKIRAX [Suspect]
     Active Substance: OMBITASVIR\PARITAPREVIR\RITONAVIR
     Indication: HEPATIC CIRRHOSIS
  2. VIEKIRAX [Suspect]
     Active Substance: OMBITASVIR\PARITAPREVIR\RITONAVIR
     Indication: HEPATITIS C
     Dosage: 2-0-0
     Route: 048
     Dates: start: 20160206, end: 20160428
  3. EXVIERA [Suspect]
     Active Substance: DASABUVIR
     Indication: HEPATIC CIRRHOSIS
  4. EXVIERA [Suspect]
     Active Substance: DASABUVIR
     Indication: HEPATITIS C
     Dosage: 1-0-1
     Route: 048
     Dates: start: 20160206, end: 20160428
  5. MODERIBA [Suspect]
     Active Substance: RIBAVIRIN
     Indication: HEPATITIS C
     Route: 048
     Dates: start: 20160206, end: 20160228
  6. MODERIBA [Suspect]
     Active Substance: RIBAVIRIN
     Indication: HEPATIC CIRRHOSIS

REACTIONS (1)
  - Gastrointestinal mucocoele [Recovered/Resolved]
